FAERS Safety Report 15810794 (Version 5)
Quarter: 2019Q1

REPORT INFORMATION
  Report Type: Spontaneous
  Country: CA (occurrence: CA)
  Receive Date: 20190111
  Receipt Date: 20190329
  Transmission Date: 20190417
  Serious: Yes (Hospitalization, Other)
  Sender: FDA-Public Use
  Company Number: CA-CELLTRION INC.-2018CA022815

PATIENT

DRUGS (19)
  1. INFLECTRA [Suspect]
     Active Substance: INFLIXIMAB-DYYB
     Dosage: 400 MG, EVERY 0, 2, 6WEEKS, THEN EVERY 8 WEEKS
     Route: 042
     Dates: start: 20180924
  2. MEZAVANT [Concomitant]
     Active Substance: MESALAMINE
     Dosage: 3.6 MG ONCE DAILY (OD)
     Route: 048
  3. INFLECTRA [Suspect]
     Active Substance: INFLIXIMAB-DYYB
     Dosage: 400 MG EVERY 0, 2, 6WEEKS, THEN EVERY 8 WEEKS
     Route: 042
     Dates: start: 20180911
  4. CANDESARTAN. [Concomitant]
     Active Substance: CANDESARTAN
     Indication: HYPERTENSION
     Dosage: 4 MG OD
     Dates: start: 20180326
  5. LEVEMIR [Concomitant]
     Active Substance: INSULIN DETEMIR
     Dosage: 16 UNITS IN AM (MORNING) AND 180 UNITS AT BEDTIME
  6. NOVORAPID [Concomitant]
     Active Substance: INSULIN ASPART
     Dosage: SLIDING SCALE ON CARBOHYDRATE COUNTING WITH 2:1 RATIO, THRICE DAILY (TID)
  7. MAGNESIUM [Concomitant]
     Active Substance: MAGNESIUM
     Dosage: UNK
     Route: 065
  8. SALBUTAMOL + BECLOMETASONA [Concomitant]
     Dosage: UNK, AS NEEDED
     Route: 065
  9. AZATHIOPRINE. [Concomitant]
     Active Substance: AZATHIOPRINE
     Dosage: 150 MG, DAILY
     Route: 048
  10. LOSEC 1-2-3 M [Concomitant]
     Dosage: 20 MG, OD
     Route: 048
  11. VITAMIN D [Concomitant]
     Active Substance: CHOLECALCIFEROL
     Dosage: UNK
  12. HYDROCORTISONE. [Concomitant]
     Active Substance: HYDROCORTISONE
     Indication: PREMEDICATION
     Dosage: UNK
  13. INFLECTRA [Suspect]
     Active Substance: INFLIXIMAB-DYYB
     Indication: RHEUMATOID ARTHRITIS
     Dosage: UNK
     Route: 065
     Dates: start: 20180815
  14. INFLECTRA [Suspect]
     Active Substance: INFLIXIMAB-DYYB
     Dosage: 400 MG EVERY 0, 2, 6WEEKS, THEN EVERY 8 WEEKS
     Route: 042
     Dates: start: 20181026
  15. INFLECTRA [Suspect]
     Active Substance: INFLIXIMAB-DYYB
     Dosage: 400 MG, EVERY 0, 2, 6WEEKS, THEN EVERY 8 WEEKS)
     Route: 042
     Dates: start: 20190122
  16. METOCLOPRAMIDE. [Concomitant]
     Active Substance: METOCLOPRAMIDE
     Dosage: 5 MG IN AM/10 MG AT LUNCH AND DINNER OD
     Route: 048
  17. OMEGA 3 [FISH OIL] [Concomitant]
     Active Substance: FISH OIL
     Dosage: OD
     Route: 048
  18. OMEGA 3 + 6 [Concomitant]
     Dosage: OD
     Route: 048
  19. SALBUTAMOL [Concomitant]
     Active Substance: ALBUTEROL
     Dosage: PUFFER AS NEEDED

REACTIONS (22)
  - Pneumonia [Unknown]
  - Palpitations [Unknown]
  - Joint swelling [Unknown]
  - Gastrointestinal disorder [Unknown]
  - Acrochordon [Unknown]
  - Dyspnoea [Unknown]
  - Arthralgia [Recovered/Resolved]
  - Gait inability [Unknown]
  - Productive cough [Not Recovered/Not Resolved]
  - Fatigue [Not Recovered/Not Resolved]
  - Secretion discharge [Not Recovered/Not Resolved]
  - Off label use [Unknown]
  - Swelling face [Unknown]
  - Pyrexia [Not Recovered/Not Resolved]
  - Malaise [Not Recovered/Not Resolved]
  - Respiratory syncytial virus infection [Unknown]
  - Nausea [Unknown]
  - Chills [Not Recovered/Not Resolved]
  - Headache [Recovered/Resolved]
  - Condition aggravated [Unknown]
  - Heart rate increased [Unknown]
  - Pruritus generalised [Not Recovered/Not Resolved]

NARRATIVE: CASE EVENT DATE: 20180924
